FAERS Safety Report 25690032 (Version 1)
Quarter: 2025Q3

REPORT INFORMATION
  Report Type: Spontaneous
  Country: US (occurrence: US)
  Receive Date: 20250818
  Receipt Date: 20250818
  Transmission Date: 20251020
  Serious: Yes (Hospitalization, Other)
  Sender: STRIDES
  Company Number: US-STRIDES PHARMA UK LTD.-2025SP010510

PATIENT
  Age: 74 Year
  Sex: Male

DRUGS (1)
  1. PREDNISOLONE [Suspect]
     Active Substance: PREDNISOLONE
     Indication: Gout
     Route: 065

REACTIONS (4)
  - Respiratory failure [Unknown]
  - Renal failure [Unknown]
  - Mycobacterium chelonae infection [Recovering/Resolving]
  - Off label use [Unknown]
